FAERS Safety Report 6250454-3 (Version None)
Quarter: 2009Q2

REPORT INFORMATION
  Report Type: 
  Country: None (occurrence: None)
  Receive Date: 20090630
  Receipt Date: 20090617
  Transmission Date: 20091009
  Serious: Yes (Other)
  Sender: FDA-Public Use
  Company Number: PHHY2009AU24082

PATIENT
  Sex: Female

DRUGS (3)
  1. ACLASTA [Suspect]
     Indication: OSTEOPOROSIS
     Dosage: UNK
     Dates: start: 20090612
  2. BOTOX [Concomitant]
     Indication: DYSTONIA
     Dosage: UNK
  3. BOTOX [Concomitant]
     Dosage: UNK
     Dates: start: 20090525

REACTIONS (8)
  - BACK PAIN [None]
  - DIZZINESS [None]
  - DYSTONIA [None]
  - HAEMORRHOIDS [None]
  - MALAISE [None]
  - MUSCULAR WEAKNESS [None]
  - MYALGIA [None]
  - SYNCOPE [None]
